FAERS Safety Report 4851883-2 (Version None)
Quarter: 2005Q4

REPORT INFORMATION
  Report Type: 
  Country: None (occurrence: None)
  Receive Date: 20051209
  Receipt Date: 20051122
  Transmission Date: 20060501
  Serious: Yes (Hospitalization)
  Sender: FDA-Public Use
  Company Number: FABR-11318

PATIENT
  Age: 53 Year
  Sex: Male

DRUGS (6)
  1. FABRAZYME [Suspect]
     Indication: FABRY'S DISEASE
     Dosage: 1 MG/KG Q2WKS IV
     Route: 042
     Dates: start: 20050711
  2. FABRAZYME [Suspect]
     Indication: FABRY'S DISEASE
     Dosage: 0.7 MG/KG Q2WKS IV
     Route: 042
     Dates: start: 20050501, end: 20050627
  3. ANTI-ALLERGIC PREMEDICATION [Concomitant]
  4. FABRAZYME [Suspect]
     Indication: FABRY'S DISEASE
     Dosage: 25 MG Q2WKS IV
     Route: 042
     Dates: start: 20041206
  5. FABRAZYME [Suspect]
     Indication: FABRY'S DISEASE
     Dosage: 70 MG Q2WKS IV
     Route: 042
     Dates: start: 20031015, end: 20040928
  6. ANTI-ALLERGIC PREMEDICATION [Concomitant]

REACTIONS (14)
  - ACARODERMATITIS [None]
  - DEHYDRATION [None]
  - HYPERCALCAEMIA [None]
  - HYPOALBUMINAEMIA [None]
  - HYPOTENSION [None]
  - INFLAMMATION [None]
  - INFUSION RELATED REACTION [None]
  - IRON DEFICIENCY ANAEMIA [None]
  - LEUKOCYTOSIS [None]
  - MALIGNANT NEOPLASM PROGRESSION [None]
  - MULTIPLE MYELOMA [None]
  - PAIN [None]
  - PYREXIA [None]
  - SOMNOLENCE [None]
